FAERS Safety Report 8615546-X (Version None)
Quarter: 2012Q3

REPORT INFORMATION
  Report Type: 
  Country: None (occurrence: None)
  Receive Date: 20120823
  Receipt Date: 20120816
  Transmission Date: 20120928
  Serious: Yes (Death, Hospitalization, Disabling)
  Sender: FDA-Public Use
  Company Number: JP-JNJFOC-20120714905

PATIENT
  Sex: Female
  Weight: 40 kg

DRUGS (72)
  1. SIMPONI [Suspect]
     Indication: RHEUMATOID ARTHRITIS
     Route: 058
     Dates: start: 20120222
  2. LEVOFLOXACIN [Concomitant]
     Route: 048
     Dates: start: 20120622, end: 20120625
  3. CELEBREX [Concomitant]
     Route: 048
     Dates: start: 20120621, end: 20120701
  4. REBAMIPIDE [Concomitant]
     Route: 048
     Dates: start: 20120621, end: 20120701
  5. GLUCOSE [Concomitant]
     Route: 041
     Dates: start: 20120706, end: 20120710
  6. ALBUMIN (HUMAN) [Concomitant]
     Route: 041
     Dates: start: 20120709, end: 20120711
  7. CEFTAZIDIME SODIUM [Concomitant]
     Route: 041
     Dates: start: 20120708, end: 20120710
  8. BREDININ [Concomitant]
     Indication: RHEUMATOID ARTHRITIS
     Route: 048
     Dates: start: 20090811
  9. PREDNISOLONE [Concomitant]
     Route: 048
     Dates: start: 20120621, end: 20120701
  10. BISOPROLOL FUMARATE [Concomitant]
     Route: 048
     Dates: start: 20120621, end: 20120701
  11. VERAPAMIL HCL [Concomitant]
     Route: 048
     Dates: start: 20120618, end: 20120618
  12. VERAPAMIL HCL [Concomitant]
     Route: 048
     Dates: start: 20120620, end: 20120627
  13. LEVEMIR [Concomitant]
     Route: 058
     Dates: start: 20120628, end: 20120628
  14. GLUCOSE [Concomitant]
     Route: 041
     Dates: start: 20120701, end: 20120702
  15. PROPOFOL [Concomitant]
     Route: 041
     Dates: start: 20120710, end: 20120712
  16. SOLULACT [Concomitant]
     Route: 041
     Dates: start: 20120701, end: 20120711
  17. CLINDAMYCIN [Concomitant]
     Route: 041
     Dates: start: 20120708, end: 20120709
  18. OMEGACIN [Concomitant]
     Route: 041
     Dates: start: 20120712, end: 20120712
  19. METHOTREXATE [Concomitant]
     Indication: RHEUMATOID ARTHRITIS
     Dates: start: 20100216
  20. WARFARIN SODIUM [Concomitant]
     Route: 048
     Dates: start: 20120620, end: 20120624
  21. GLUCOSE [Concomitant]
     Route: 041
     Dates: start: 20120704, end: 20120705
  22. DILTIAZEM HYDROCHLORIDE [Concomitant]
     Route: 041
     Dates: start: 20120705, end: 20120712
  23. ACETATED RINGER [Concomitant]
     Route: 041
     Dates: start: 20120701, end: 20120708
  24. SEISHOKU [Concomitant]
     Route: 041
     Dates: start: 20120701, end: 20120707
  25. ALBUMIN (HUMAN) [Concomitant]
     Route: 041
     Dates: start: 20120702, end: 20120704
  26. POTASSIUM CHLORIDE [Concomitant]
     Route: 041
     Dates: start: 20120705, end: 20120705
  27. LASIX [Concomitant]
     Route: 041
     Dates: start: 20120711, end: 20120712
  28. LASIX [Concomitant]
     Route: 041
     Dates: start: 20120703, end: 20120710
  29. ISOTONIC SODIUM CHLORIDE SOLUTION [Concomitant]
     Route: 041
     Dates: start: 20120705, end: 20120712
  30. POTASSIUM CHLORIDE [Concomitant]
     Route: 041
     Dates: start: 20120706, end: 20120707
  31. SIMPONI [Suspect]
     Route: 058
     Dates: end: 20120629
  32. SUCRALFATE [Concomitant]
     Route: 048
     Dates: start: 20120622, end: 20120701
  33. SLOW-K [Concomitant]
     Route: 048
     Dates: start: 20120620, end: 20120627
  34. LANSOPRAZOLE [Concomitant]
     Route: 048
     Dates: start: 20120621, end: 20120701
  35. PANTOSIN [Concomitant]
     Route: 048
     Dates: start: 20120624, end: 20120724
  36. ELASPOL [Concomitant]
     Route: 065
     Dates: start: 20120701, end: 20120710
  37. GLUCOSE [Concomitant]
     Route: 041
     Dates: start: 20120711, end: 20120711
  38. FULCALIQ 1 [Concomitant]
     Route: 041
     Dates: start: 20120701, end: 20120703
  39. FUROSEMIDE [Concomitant]
     Route: 041
     Dates: start: 20120703, end: 20120703
  40. PROPOFOL [Concomitant]
     Route: 041
     Dates: start: 20120702, end: 20120708
  41. MANNITOL [Concomitant]
     Route: 041
     Dates: start: 20120703, end: 20120712
  42. SEISHOKU [Concomitant]
     Route: 041
     Dates: start: 20120711, end: 20120711
  43. SEISHOKU [Concomitant]
     Route: 041
     Dates: start: 20120710, end: 20120710
  44. ISOTONIC SODIUM CHLORIDE SOLUTION [Concomitant]
     Route: 041
     Dates: start: 20120708, end: 20120709
  45. VERAPAMIL HCL [Concomitant]
     Route: 041
     Dates: start: 20120704, end: 20120705
  46. OMEGACIN [Concomitant]
     Route: 041
     Dates: start: 20120710, end: 20120710
  47. SIMPONI [Suspect]
     Route: 058
     Dates: start: 20120321
  48. FUROSEMIDE [Concomitant]
     Route: 041
     Dates: start: 20120701, end: 20120701
  49. MEROPENEM [Concomitant]
     Route: 041
     Dates: start: 20120702, end: 20120707
  50. SOLU-MEDROL [Concomitant]
     Route: 041
     Dates: start: 20120701, end: 20120702
  51. SEISHOKU [Concomitant]
     Route: 041
     Dates: start: 20120712, end: 20120712
  52. OMEPRAZOLE [Concomitant]
     Route: 041
     Dates: start: 20120701, end: 20120712
  53. ISOTONIC SODIUM CHLORIDE SOLUTION [Concomitant]
     Route: 041
     Dates: start: 20120711, end: 20120712
  54. ISOTONIC SODIUM CHLORIDE SOLUTION [Concomitant]
     Route: 041
     Dates: start: 20120710, end: 20120710
  55. ISOTONIC SODIUM CHLORIDE SOLUTION [Concomitant]
     Route: 041
     Dates: start: 20120701, end: 20120702
  56. DIGOXIN [Concomitant]
     Route: 041
     Dates: start: 20120705, end: 20120710
  57. CLINDAMYCIN [Concomitant]
     Route: 041
     Dates: start: 20120710, end: 20120710
  58. FULCALIQ 2 [Concomitant]
     Route: 041
     Dates: start: 20120703, end: 20120712
  59. SIMPONI [Suspect]
     Route: 058
     Dates: start: 20120418
  60. RHYTHMY [Concomitant]
     Route: 048
     Dates: start: 20120623, end: 20120623
  61. PREDNISOLONE [Concomitant]
     Route: 041
     Dates: start: 20120701, end: 20120702
  62. PROPOFOL [Concomitant]
     Route: 041
     Dates: start: 20120709, end: 20120709
  63. HEPARIN SODIUM [Concomitant]
     Route: 041
     Dates: start: 20120703, end: 20120712
  64. ISOTONIC SODIUM CHLORIDE SOLUTION [Concomitant]
     Route: 041
     Dates: start: 20120701, end: 20120712
  65. BIO-THREE [Concomitant]
     Route: 048
     Dates: start: 20120622, end: 20120727
  66. FUROSEMIDE [Concomitant]
     Route: 048
     Dates: start: 20120620, end: 20120627
  67. LOXONIN [Concomitant]
     Route: 062
     Dates: start: 20120625, end: 20120625
  68. UNKNOWN MEDICATION [Concomitant]
     Route: 041
     Dates: start: 20120701, end: 20120712
  69. GLUCOSE [Concomitant]
     Route: 041
     Dates: start: 20120703, end: 20120703
  70. PREDNISOLONE [Concomitant]
     Route: 041
     Dates: start: 20120703, end: 20120712
  71. VERAPAMIL HCL [Concomitant]
     Route: 041
     Dates: start: 20120702, end: 20120703
  72. OMEGACIN [Concomitant]
     Route: 041
     Dates: start: 20120711, end: 20120711

REACTIONS (5)
  - ARRHYTHMIA [None]
  - FALL [None]
  - PNEUMOTHORAX [None]
  - PNEUMONIA [None]
  - CARDIAC FAILURE [None]
